FAERS Safety Report 7089476-1 (Version None)
Quarter: 2010Q4

REPORT INFORMATION
  Report Type: 
  Country: None (occurrence: None)
  Receive Date: 20101108
  Receipt Date: 20091113
  Transmission Date: 20110411
  Serious: No
  Sender: FDA-Public Use
  Company Number: PHHY2009NL49881

PATIENT
  Age: 22 Year
  Sex: Female

DRUGS (1)
  1. RITALIN [Suspect]

REACTIONS (1)
  - DECREASED APPETITE [None]
